FAERS Safety Report 13692690 (Version 1)
Quarter: 2017Q2

REPORT INFORMATION
  Report Type: Spontaneous
  Country: US (occurrence: US)
  Receive Date: 20170627
  Receipt Date: 20170627
  Transmission Date: 20170830
  Serious: No
  Sender: FDA-Public Use
  Company Number: US-PFIZER INC-2017153792

PATIENT
  Age: 65 Year
  Sex: Female
  Weight: 59 kg

DRUGS (1)
  1. XALKORI [Suspect]
     Active Substance: CRIZOTINIB
     Indication: NEOPLASM MALIGNANT
     Dosage: OPENED AND ADMINISTERED INTO A FEEDING TUBE

REACTIONS (2)
  - Product use issue [Unknown]
  - Speech disorder [Unknown]

NARRATIVE: CASE EVENT DATE: 201703
